FAERS Safety Report 4830139-8 (Version None)
Quarter: 2005Q4

REPORT INFORMATION
  Report Type: 
  Country: None (occurrence: None)
  Receive Date: 20051115
  Receipt Date: 20051115
  Transmission Date: 20060501
  Serious: Yes (Hospitalization)
  Sender: FDA-Public Use
  Company Number: None

PATIENT
  Age: 89 Year
  Sex: Female
  Weight: 61.7 kg

DRUGS (13)
  1. QUINIDEX [Suspect]
     Indication: MUSCLE SPASMS
     Dosage: 300 MG PRN, RARELY USES
  2. ALLEGRA [Concomitant]
  3. FES04 [Concomitant]
  4. CA+ D [Concomitant]
  5. SENOKOT [Concomitant]
  6. ZYPREXA [Concomitant]
  7. ATIVAN [Concomitant]
  8. DITROPAN [Concomitant]
  9. LIPITOR [Concomitant]
  10. QUINIDINE HCL [Concomitant]
  11. ULTRAM [Concomitant]
  12. TYLENOL (CAPLET) [Concomitant]
  13. PHENOBARB [Concomitant]

REACTIONS (4)
  - ANAEMIA [None]
  - GASTRITIS [None]
  - GASTROINTESTINAL HAEMORRHAGE [None]
  - THROMBOCYTOPENIA [None]
